FAERS Safety Report 9834891 (Version 2)
Quarter: 2014Q1

REPORT INFORMATION
  Report Type: Spontaneous
  Country: US (occurrence: US)
  Receive Date: 20140122
  Receipt Date: 20140128
  Transmission Date: 20141002
  Serious: Yes (Death, Hospitalization)
  Sender: FDA-Public Use
  Company Number: US-B.I. PHARMACEUTICALS,INC./RIDGEFIELD-2014-BI-02716BP

PATIENT
  Sex: Female
  Weight: 54.43 kg

DRUGS (6)
  1. PRADAXA [Suspect]
     Indication: ATRIAL FIBRILLATION
     Dosage: 300 MG
     Route: 048
     Dates: start: 20110810, end: 20121218
  2. DILTIAZEM [Concomitant]
     Dosage: 240 MG
     Route: 048
  3. CARVEDILOL [Concomitant]
     Dosage: 6.35 MG
     Route: 048
  4. LASIX [Concomitant]
     Dosage: 20 MG
     Route: 048
  5. PROTONIX [Concomitant]
     Dosage: 40 MG
     Route: 048
  6. COMBIVENT [Concomitant]
     Route: 055

REACTIONS (8)
  - Upper gastrointestinal haemorrhage [Fatal]
  - Respiratory failure [Unknown]
  - Pneumonia [Unknown]
  - Chronic obstructive pulmonary disease [Unknown]
  - Septic shock [Unknown]
  - Toxicity to various agents [Unknown]
  - Coagulopathy [Unknown]
  - Renal failure acute [Unknown]
